FAERS Safety Report 20497071 (Version 10)
Quarter: 2022Q3

REPORT INFORMATION
  Report Type: Report from Study
  Country: CN (occurrence: None)
  Receive Date: 20220221
  Receipt Date: 20220728
  Transmission Date: 20221027
  Serious: Yes (Death, Hospitalization)
  Sender: FDA-Public Use
  Company Number: CN-ROCHE-2915463

PATIENT
  Age: 68 Year
  Sex: Male
  Weight: 50 kg

DRUGS (69)
  1. ATEZOLIZUMAB [Suspect]
     Active Substance: ATEZOLIZUMAB
     Indication: Oesophageal squamous cell carcinoma
     Dosage: START DATE OF MOST RECENT DOSE OF STUDY DRUG?PRIOR TO AE 25/JAN/2022.?START DATE OF MOST RECENT DOSE
     Route: 041
     Dates: start: 20210807
  2. TIRAGOLUMAB [Suspect]
     Active Substance: TIRAGOLUMAB
     Indication: Oesophageal squamous cell carcinoma
     Dosage: START DATE OF MOST RECENT DOSE OF STUDY, DRUG?PRIOR TO AE 25/JAN/2022,?START DATE OF MOST RECENT DOS
     Route: 042
     Dates: start: 20210807
  3. PACLITAXEL [Suspect]
     Active Substance: PACLITAXEL
     Indication: Oesophageal squamous cell carcinoma
     Dosage: START DATE OF MOST RECENT DOSE (222 MG) OF STUDY DRUG PRIOR TO AE/SAE WAS ON 27/AUG/2021 AND 07/JAN/
     Route: 042
     Dates: start: 20210807
  4. CISPLATIN [Suspect]
     Active Substance: CISPLATIN
     Indication: Oesophageal squamous cell carcinoma
     Dosage: START DATE OF MOST RECENT DOSE (74 MG) OF STUDY DRUG PRIOR TO AE/SAE WAS ON 27/AUG/2021 AND 07/JAN/2
     Route: 042
     Dates: start: 20210807
  5. ACETAMINOPHEN\TRAMADOL [Concomitant]
     Active Substance: ACETAMINOPHEN\TRAMADOL
     Indication: Pain
     Dates: start: 20210728, end: 20211030
  6. MEGESTROL ACETATE [Concomitant]
     Active Substance: MEGESTROL ACETATE
     Dates: start: 20210728, end: 20211216
  7. MEGESTROL ACETATE [Concomitant]
     Active Substance: MEGESTROL ACETATE
     Dosage: ONGOING: YES
     Dates: start: 20220107
  8. INDOMETHACIN [Concomitant]
     Active Substance: INDOMETHACIN
     Indication: Pyrexia
     Dates: start: 20210829, end: 20210829
  9. TIOPRONIN [Concomitant]
     Active Substance: TIOPRONIN
     Dates: start: 20210827, end: 20210829
  10. TIOPRONIN [Concomitant]
     Active Substance: TIOPRONIN
     Dates: start: 20211031, end: 20211104
  11. TIOPRONIN [Concomitant]
     Active Substance: TIOPRONIN
     Dates: start: 20211124, end: 20211126
  12. TIOPRONIN [Concomitant]
     Active Substance: TIOPRONIN
     Dates: start: 20211214, end: 20211216
  13. TIOPRONIN [Concomitant]
     Active Substance: TIOPRONIN
     Dates: start: 20220106, end: 20220108
  14. TIOPRONIN [Concomitant]
     Active Substance: TIOPRONIN
     Dates: start: 20220210, end: 20220210
  15. TIOPRONIN [Concomitant]
     Active Substance: TIOPRONIN
     Dates: start: 20220211, end: 20220214
  16. OMEPRAZOLE SODIUM [Concomitant]
     Active Substance: OMEPRAZOLE SODIUM
     Dates: start: 20210827, end: 20210829
  17. OMEPRAZOLE SODIUM [Concomitant]
     Active Substance: OMEPRAZOLE SODIUM
     Dates: start: 20211031, end: 20211104
  18. OMEPRAZOLE SODIUM [Concomitant]
     Active Substance: OMEPRAZOLE SODIUM
     Dates: start: 20211124, end: 20211126
  19. OMEPRAZOLE SODIUM [Concomitant]
     Active Substance: OMEPRAZOLE SODIUM
     Dates: start: 20211214, end: 20211216
  20. OMEPRAZOLE SODIUM [Concomitant]
     Active Substance: OMEPRAZOLE SODIUM
     Dates: start: 20220106, end: 20220108
  21. OMEPRAZOLE SODIUM [Concomitant]
     Active Substance: OMEPRAZOLE SODIUM
     Dates: start: 20220210, end: 20220218
  22. ONDANSETRON HYDROCHLORIDE [Concomitant]
     Active Substance: ONDANSETRON HYDROCHLORIDE
     Indication: Prophylaxis of nausea and vomiting
     Dates: start: 20210827, end: 20210829
  23. ONDANSETRON HYDROCHLORIDE [Concomitant]
     Active Substance: ONDANSETRON HYDROCHLORIDE
     Dates: start: 20211103, end: 20211104
  24. ONDANSETRON HYDROCHLORIDE [Concomitant]
     Active Substance: ONDANSETRON HYDROCHLORIDE
     Dates: start: 20211125, end: 20211126
  25. ONDANSETRON HYDROCHLORIDE [Concomitant]
     Active Substance: ONDANSETRON HYDROCHLORIDE
     Dates: start: 20211215, end: 20211215
  26. ONDANSETRON HYDROCHLORIDE [Concomitant]
     Active Substance: ONDANSETRON HYDROCHLORIDE
     Dates: start: 20220107, end: 20220108
  27. DEXAMETHASONE SODIUM PHOSPHATE [Concomitant]
     Active Substance: DEXAMETHASONE SODIUM PHOSPHATE
     Indication: Hypersensitivity
     Route: 042
     Dates: start: 20210827, end: 20210827
  28. DEXAMETHASONE SODIUM PHOSPHATE [Concomitant]
     Active Substance: DEXAMETHASONE SODIUM PHOSPHATE
     Route: 042
     Dates: start: 20211103, end: 20211103
  29. DEXAMETHASONE SODIUM PHOSPHATE [Concomitant]
     Active Substance: DEXAMETHASONE SODIUM PHOSPHATE
     Route: 042
     Dates: start: 20211125, end: 20211125
  30. DEXAMETHASONE SODIUM PHOSPHATE [Concomitant]
     Active Substance: DEXAMETHASONE SODIUM PHOSPHATE
     Route: 042
     Dates: start: 20211215, end: 20211215
  31. DEXAMETHASONE SODIUM PHOSPHATE [Concomitant]
     Active Substance: DEXAMETHASONE SODIUM PHOSPHATE
     Route: 042
     Dates: start: 20220107, end: 20220107
  32. DIPHENHYDRAMINE HYDROCHLORIDE [Concomitant]
     Active Substance: DIPHENHYDRAMINE HYDROCHLORIDE
     Indication: Hypersensitivity
     Dates: start: 20210827, end: 20210827
  33. DIPHENHYDRAMINE HYDROCHLORIDE [Concomitant]
     Active Substance: DIPHENHYDRAMINE HYDROCHLORIDE
     Dates: start: 20211103, end: 20211103
  34. DIPHENHYDRAMINE HYDROCHLORIDE [Concomitant]
     Active Substance: DIPHENHYDRAMINE HYDROCHLORIDE
     Dates: start: 20211125, end: 20211125
  35. DIPHENHYDRAMINE HYDROCHLORIDE [Concomitant]
     Active Substance: DIPHENHYDRAMINE HYDROCHLORIDE
     Dates: start: 20211215, end: 20211215
  36. DIPHENHYDRAMINE HYDROCHLORIDE [Concomitant]
     Active Substance: DIPHENHYDRAMINE HYDROCHLORIDE
     Dates: start: 20220107, end: 20220107
  37. CIMETIDINE [Concomitant]
     Active Substance: CIMETIDINE
     Indication: Hypersensitivity
     Dates: start: 20210827, end: 20210827
  38. CIMETIDINE [Concomitant]
     Active Substance: CIMETIDINE
     Dates: start: 20211103, end: 20211103
  39. CIMETIDINE [Concomitant]
     Active Substance: CIMETIDINE
     Dates: start: 20211125, end: 20211125
  40. CIMETIDINE [Concomitant]
     Active Substance: CIMETIDINE
     Dates: start: 20211215, end: 20211215
  41. CIMETIDINE [Concomitant]
     Active Substance: CIMETIDINE
     Dates: start: 20220107, end: 20220107
  42. LEUCOGEN [Concomitant]
     Active Substance: LEUCOGEN
     Dates: start: 20211111, end: 20211123
  43. METOCLOPRAMIDE HYDROCHLORIDE [Concomitant]
     Active Substance: METOCLOPRAMIDE HYDROCHLORIDE
     Indication: Prophylaxis of nausea and vomiting
     Dates: start: 20211125, end: 20211126
  44. METOCLOPRAMIDE HYDROCHLORIDE [Concomitant]
     Active Substance: METOCLOPRAMIDE HYDROCHLORIDE
     Indication: Nausea
     Dates: start: 20220210, end: 20220218
  45. OXYCODONE HYDROCHLORIDE [Concomitant]
     Active Substance: OXYCODONE HYDROCHLORIDE
     Indication: Analgesic therapy
     Dates: start: 20211031
  46. IBUPROFEN [Concomitant]
     Active Substance: IBUPROFEN
     Dates: start: 20220119, end: 20220119
  47. VITAMIN C [Concomitant]
     Active Substance: ASCORBIC ACID
     Route: 042
     Dates: start: 20220210, end: 20220214
  48. VITAMIN B6 [Concomitant]
     Active Substance: PYRIDOXINE HYDROCHLORIDE
     Route: 042
     Dates: start: 20220210, end: 20220214
  49. POTASSIUM CHLORIDE [Concomitant]
     Active Substance: POTASSIUM CHLORIDE
     Dates: start: 20220210, end: 20220217
  50. SODIUM CHLORIDE [Concomitant]
     Active Substance: SODIUM CHLORIDE
     Dates: start: 20220210, end: 20220217
  51. COMPOUND AMINO ACID (18AA-I) [Concomitant]
     Route: 042
     Dates: start: 20220210, end: 20220217
  52. ESOMEPRAZOLE MAGNESIUM [Concomitant]
     Active Substance: ESOMEPRAZOLE MAGNESIUM
     Dates: start: 20220214, end: 20220215
  53. SILYBIN MEGLUMINE [Concomitant]
     Dates: start: 20220214, end: 20220218
  54. ALBUMIN HUMAN [Concomitant]
     Active Substance: ALBUMIN HUMAN
     Route: 042
     Dates: start: 20220211, end: 20220218
  55. FUROSEMIDE [Concomitant]
     Active Substance: FUROSEMIDE
     Dates: start: 20220211, end: 20220218
  56. INDOMETHACIN [Concomitant]
     Active Substance: INDOMETHACIN
     Route: 054
     Dates: start: 20220211, end: 20220211
  57. INDOMETHACIN [Concomitant]
     Active Substance: INDOMETHACIN
     Route: 048
     Dates: start: 20220212, end: 20220212
  58. QINGKAILING RUANJIAONANG [Concomitant]
     Indication: Detoxification
     Route: 048
     Dates: start: 20220211, end: 20220211
  59. QINGKAILING RUANJIAONANG [Concomitant]
     Dates: start: 20220119
  60. DOXOFYLLINE [Concomitant]
     Active Substance: DOXOFYLLINE
     Indication: Asthma
     Route: 042
     Dates: start: 20220211, end: 20220218
  61. PIPERACILLIN SODIUM\TAZOBACTAM SODIUM [Concomitant]
     Active Substance: PIPERACILLIN SODIUM\TAZOBACTAM SODIUM
     Route: 042
     Dates: start: 20220211, end: 20220213
  62. FLUCONAZOLE [Concomitant]
     Active Substance: FLUCONAZOLE
     Route: 042
     Dates: start: 20220213, end: 20220213
  63. SULFAMETHOXAZOLE [Concomitant]
     Active Substance: SULFAMETHOXAZOLE
     Dates: start: 20220213, end: 20220218
  64. METHYLPREDNISOLONE SODIUM SUCCINATE [Concomitant]
     Active Substance: METHYLPREDNISOLONE SODIUM SUCCINATE
     Route: 042
     Dates: start: 20220213, end: 20220215
  65. METHYLPREDNISOLONE SODIUM SUCCINATE [Concomitant]
     Active Substance: METHYLPREDNISOLONE SODIUM SUCCINATE
     Route: 042
     Dates: start: 20220215, end: 20220215
  66. METHYLPREDNISOLONE SODIUM SUCCINATE [Concomitant]
     Active Substance: METHYLPREDNISOLONE SODIUM SUCCINATE
     Route: 042
     Dates: start: 20220216, end: 20220216
  67. IMIPENEM AND CILASTATIN SODIUM [Concomitant]
     Active Substance: CILASTATIN SODIUM\IMIPENEM
     Dates: start: 20220213, end: 20220218
  68. MOXIFLOXACIN HYDROCHLORIDE [Concomitant]
     Active Substance: MOXIFLOXACIN HYDROCHLORIDE
     Dates: start: 20220215, end: 20220218
  69. HUMAN IMMUNOGLOBULIN G [Concomitant]
     Active Substance: HUMAN IMMUNOGLOBULIN G
     Route: 042
     Dates: start: 20220216, end: 20220216

REACTIONS (3)
  - Immune-mediated lung disease [Fatal]
  - Pneumonia fungal [Not Recovered/Not Resolved]
  - Malnutrition [Not Recovered/Not Resolved]

NARRATIVE: CASE EVENT DATE: 20210909
